FAERS Safety Report 23744540 (Version 1)
Quarter: 2024Q2

REPORT INFORMATION
  Report Type: Spontaneous
  Country: CZ (occurrence: CZ)
  Receive Date: 20240415
  Receipt Date: 20240415
  Transmission Date: 20240716
  Serious: Yes (Other)
  Sender: FDA-Public Use
  Company Number: None

PATIENT
  Age: 14 Year
  Sex: Female

DRUGS (1)
  1. FEVARIN [Suspect]
     Active Substance: FLUVOXAMINE MALEATE
     Indication: Product used for unknown indication
     Dosage: 50 MILLIGRAM
     Route: 048

REACTIONS (5)
  - Suicidal ideation [Recovering/Resolving]
  - Constipation [Recovering/Resolving]
  - Tongue blistering [Recovering/Resolving]
  - Abnormal dreams [Recovering/Resolving]
  - Headache [Recovering/Resolving]
